FAERS Safety Report 22201067 (Version 1)
Quarter: 2023Q2

REPORT INFORMATION
  Report Type: Spontaneous
  Country: AU (occurrence: AU)
  Receive Date: 20230412
  Receipt Date: 20230412
  Transmission Date: 20230722
  Serious: Yes (Other)
  Sender: FDA-Public Use
  Company Number: AU-ALKEM LABORATORIES LIMITED-AU-ALKEM-2023-03805

PATIENT
  Age: 40 Year
  Sex: Female

DRUGS (8)
  1. IBUPROFEN [Suspect]
     Active Substance: IBUPROFEN
     Indication: Product used for unknown indication
     Dosage: UNK
     Route: 065
  2. QUETIAPINE FUMARATE [Suspect]
     Active Substance: QUETIAPINE FUMARATE
     Indication: Product used for unknown indication
     Dosage: UNK
     Route: 065
  3. ESCITALOPRAM [Suspect]
     Active Substance: ESCITALOPRAM OXALATE
     Indication: Product used for unknown indication
     Dosage: UNK
     Route: 065
  4. ATORVASTATIN CALCIUM [Suspect]
     Active Substance: ATORVASTATIN CALCIUM
     Indication: Product used for unknown indication
     Dosage: UNK
     Route: 065
  5. ALLOPURINOL [Suspect]
     Active Substance: ALLOPURINOL
     Indication: Product used for unknown indication
     Dosage: UNK
     Route: 065
  6. COMIRNATY [Suspect]
     Active Substance: TOZINAMERAN
     Indication: Product used for unknown indication
     Dosage: UNK
     Route: 065
  7. PANADOL [Suspect]
     Active Substance: ACETAMINOPHEN
     Indication: Product used for unknown indication
     Dosage: UNK
     Route: 065
  8. THIAMINE HYDROCHLORIDE [Suspect]
     Active Substance: THIAMINE HYDROCHLORIDE
     Indication: Product used for unknown indication
     Dosage: UNK
     Route: 065

REACTIONS (27)
  - Acute kidney injury [Unknown]
  - Ovarian cancer [Unknown]
  - Rhabdomyolysis [Unknown]
  - Cerebral infarction [Unknown]
  - Intestinal ischaemia [Unknown]
  - Hypogammaglobulinaemia [Unknown]
  - Multiple organ dysfunction syndrome [Unknown]
  - Liver injury [Unknown]
  - Pneumonia [Unknown]
  - Thrombocytopenia [Unknown]
  - Vasoplegia syndrome [Unknown]
  - Thrombosis [Unknown]
  - Septic shock [Unknown]
  - Blood creatine phosphokinase increased [Unknown]
  - Decreased appetite [Unknown]
  - Electrocardiogram abnormal [Unknown]
  - Haematuria [Unknown]
  - Abdominal pain [Unknown]
  - Vomiting [Unknown]
  - Headache [Unknown]
  - Malaise [Unknown]
  - Metabolic disorder [Unknown]
  - Myalgia [Unknown]
  - Myopathy [Unknown]
  - Myositis [Unknown]
  - Tachycardia [Unknown]
  - Pain in extremity [Unknown]
